FAERS Safety Report 18737248 (Version 5)
Quarter: 2021Q2

REPORT INFORMATION
  Report Type: Report from Study
  Country: US (occurrence: US)
  Receive Date: 20210113
  Receipt Date: 20210417
  Transmission Date: 20210717
  Serious: Yes (Other)
  Sender: FDA-Public Use
  Company Number: NVSC2021US006944

PATIENT
  Age: 46 Year
  Sex: Male

DRUGS (1)
  1. ENTRESTO [Suspect]
     Active Substance: SACUBITRIL\VALSARTAN
     Indication: PRODUCT USED FOR UNKNOWN INDICATION
     Dosage: 200 MG, BID
     Route: 048
     Dates: start: 202011

REACTIONS (5)
  - Loss of consciousness [Unknown]
  - Stress [Not Recovered/Not Resolved]
  - Weight increased [Unknown]
  - Dizziness [Not Recovered/Not Resolved]
  - Head injury [Unknown]

NARRATIVE: CASE EVENT DATE: 202101
